FAERS Safety Report 25725769 (Version 1)
Quarter: 2025Q3

REPORT INFORMATION
  Report Type: Spontaneous
  Country: TN (occurrence: TN)
  Receive Date: 20250826
  Receipt Date: 20250826
  Transmission Date: 20251021
  Serious: Yes (Death, Hospitalization, Other)
  Sender: NOVITIUM PHARMA
  Company Number: TN-NOVITIUMPHARMA-2025TNNVP02129

PATIENT
  Age: 69 Year
  Sex: Female

DRUGS (3)
  1. DEXAMETHASONE [Suspect]
     Active Substance: DEXAMETHASONE
     Indication: Plasma cell myeloma
  2. MELPHALAN [Concomitant]
     Active Substance: MELPHALAN
     Indication: Plasma cell myeloma
  3. THALIDOMIDE [Concomitant]
     Active Substance: THALIDOMIDE
     Indication: Plasma cell myeloma

REACTIONS (2)
  - Haemophagocytic lymphohistiocytosis [Fatal]
  - Multiple organ dysfunction syndrome [Fatal]
